FAERS Safety Report 15536317 (Version 1)
Quarter: 2018Q4

REPORT INFORMATION
  Report Type: Spontaneous
  Country: US (occurrence: US)
  Receive Date: 20181015
  Receipt Date: 20181015
  Transmission Date: 20190205
  Serious: Yes (Hospitalization)
  Sender: FDA-Public Use
  Company Number: None

PATIENT
  Age: 63 Year
  Sex: Female
  Weight: 63.5 kg

DRUGS (7)
  1. VITAMIN B12 [Concomitant]
     Active Substance: CYANOCOBALAMIN
  2. RIFAXIMIN. [Concomitant]
     Active Substance: RIFAXIMIN
  3. UMECLIDINIUM BRM [Concomitant]
  4. MAVYRET [Suspect]
     Active Substance: GLECAPREVIR\PIBRENTASVIR
     Indication: HEPATITIS C
     Route: 048
     Dates: start: 20171220, end: 20180131
  5. PYRIDOXINE [Concomitant]
     Active Substance: PYRIDOXINE
  6. VILANTEROL TR [Concomitant]
  7. FOLIC ACID. [Concomitant]
     Active Substance: FOLIC ACID

REACTIONS (1)
  - Oesophageal varices haemorrhage [None]

NARRATIVE: CASE EVENT DATE: 20180219
